FAERS Safety Report 9238107 (Version 1)
Quarter: 2013Q1

REPORT INFORMATION
  Report Type: Spontaneous
  Country: US (occurrence: None)
  Receive Date: 20121106
  Receipt Date: 20121106
  Transmission Date: 20140127
  Serious: No
  Sender: FDA-Public Use
  Company Number: 1000037668

PATIENT
  Age: 90 Year
  Sex: Male

DRUGS (3)
  1. DALIRESP [Suspect]
     Indication: CHRONIC OBSTRUCTIVE PULMONARY DISEASE
     Dosage: 500 MCG (500 MCG, 1 IN 1 D, ORAL
     Route: 048
     Dates: start: 201206, end: 201206
  2. ASPIRIN (ACETYLSALICYLIC ACID) (ACETYLSALICYLIC ACID) [Concomitant]
  3. COUMADIN (WARFARIN) (WARFARIN) [Concomitant]

REACTIONS (3)
  - Confusional state [None]
  - Decreased appetite [None]
  - Dizziness [None]
